FAERS Safety Report 9089898 (Version 1)
Quarter: 2013Q1

REPORT INFORMATION
  Report Type: Spontaneous
  Country: US (occurrence: US)
  Receive Date: 20130201
  Receipt Date: 20130201
  Transmission Date: 20140127
  Serious: No
  Sender: FDA-Public Use
  Company Number: US-BAYER-2013-013450

PATIENT
  Sex: Female
  Weight: 54.42 kg

DRUGS (2)
  1. CLIMARA [Suspect]
     Dosage: 50 MG, OW
     Route: 062
  2. CLIMARA [Suspect]
     Dosage: 37.5 MG, OW

REACTIONS (6)
  - Drug ineffective [None]
  - Nervousness [None]
  - Hunger [None]
  - Drug administration error [None]
  - Nervousness [None]
  - Drug ineffective [None]
